FAERS Safety Report 8598046-5 (Version None)
Quarter: 2012Q3

REPORT INFORMATION
  Report Type: 
  Country: None (occurrence: None)
  Receive Date: 20120816
  Receipt Date: 20120808
  Transmission Date: 20120928
  Serious: Yes (Other)
  Sender: FDA-Public Use
  Company Number: US-PFIZER INC-2012194629

PATIENT
  Age: 63 Year
  Sex: Female

DRUGS (4)
  1. PHENYTOIN [Suspect]
     Dosage: 600 MG, DAILY
     Route: 048
  2. CHLORTHALIDONE [Concomitant]
     Indication: BLOOD PRESSURE
     Dosage: 50 MG, DAILY
  3. PHENYTOIN [Suspect]
     Indication: POSTICTAL STATE
     Dosage: 300 MG/DAY
     Route: 048
  4. CLONIDINE [Concomitant]
     Indication: BLOOD PRESSURE
     Dosage: 0.2 MG, 2X/DAY

REACTIONS (2)
  - TOXIC EPIDERMAL NECROLYSIS [None]
  - TUBULOINTERSTITIAL NEPHRITIS [None]
